FAERS Safety Report 21819087 (Version 1)
Quarter: 2023Q1

REPORT INFORMATION
  Report Type: Spontaneous
  Country: US (occurrence: None)
  Receive Date: 20230104
  Receipt Date: 20230104
  Transmission Date: 20230418
  Serious: No
  Sender: FDA-Public Use
  Company Number: None

PATIENT
  Age: 48 Year
  Sex: Female
  Weight: 81 kg

DRUGS (5)
  1. SYNTHROID [Suspect]
     Active Substance: LEVOTHYROXINE SODIUM
     Indication: Hypothyroidism
     Dosage: OTHER QUANTITY : 1 TABLET(S);?
     Route: 048
  2. INSULIN NOS [Concomitant]
     Active Substance: INSULIN NOS
  3. Tandem Insulin Pump [Concomitant]
  4. Dexcom G6 [Concomitant]
  5. Vitamin D Supplements [Concomitant]

REACTIONS (6)
  - Rash papular [None]
  - Rash [None]
  - Rash pruritic [None]
  - Urticaria [None]
  - Insomnia [None]
  - Skin haemorrhage [None]

NARRATIVE: CASE EVENT DATE: 20221013
